FAERS Safety Report 5098041-7 (Version None)
Quarter: 2006Q3

REPORT INFORMATION
  Report Type: 
  Country: None (occurrence: None)
  Receive Date: 20060906
  Receipt Date: 20060728
  Transmission Date: 20061208
  Serious: Yes (Death)
  Sender: FDA-Public Use
  Company Number: US-AVENTIS-200616310US

PATIENT
  Sex: Male
  Weight: 72.27 kg

DRUGS (3)
  1. TAXOTERE [Suspect]
     Indication: PROSTATE CANCER
     Dosage: DOSE: 30MG/M2
     Dates: start: 20060711, end: 20060711
  2. PREDNISONE TAB [Concomitant]
     Dosage: DOSE: UNKNOWN
  3. COUMADIN [Concomitant]
     Dosage: DOSE: UNKNOWN

REACTIONS (5)
  - GASTROINTESTINAL HAEMORRHAGE [None]
  - HAEMATOCRIT DECREASED [None]
  - HAEMOGLOBIN DECREASED [None]
  - LOSS OF CONSCIOUSNESS [None]
  - SYNCOPE [None]
